FAERS Safety Report 5382614-8 (Version None)
Quarter: 2007Q3

REPORT INFORMATION
  Report Type: 
  Country: None (occurrence: None)
  Receive Date: 20070702
  Receipt Date: 20070310
  Transmission Date: 20080115
  Serious: No
  Sender: FDA-Public Use
  Company Number: 2007PV031500

PATIENT
  Age: 58 Year
  Sex: Female

DRUGS (3)
  1. SYMLIN [Suspect]
     Indication: TYPE 2 DIABETES MELLITUS
     Dosage: SC
     Route: 058
     Dates: start: 20060101, end: 20060101
  2. LANTUS [Concomitant]
  3. PRANDIN [Concomitant]

REACTIONS (4)
  - DRUG INEFFECTIVE [None]
  - FLATULENCE [None]
  - INJECTION SITE PAIN [None]
  - INJECTION SITE RASH [None]
